FAERS Safety Report 8980865 (Version 1)
Quarter: 2012Q4

REPORT INFORMATION
  Report Type: 
  Country: US (occurrence: US)
  Receive Date: 20121221
  Receipt Date: 20121221
  Transmission Date: 20130627
  Serious: No
  Sender: FDA-Public Use
  Company Number: US-PFIZER INC-2012324751

PATIENT
  Age: 55 Year
  Sex: Male
  Weight: 63.49 kg

DRUGS (1)
  1. PRISTIQ [Suspect]
     Indication: SEIZURES
     Dosage: 50 mg, daily
     Dates: start: 2012

REACTIONS (3)
  - Off label use [Unknown]
  - Blood pressure increased [Not Recovered/Not Resolved]
  - Drug intolerance [Unknown]
